FAERS Safety Report 6490307-9 (Version None)
Quarter: 2009Q4

REPORT INFORMATION
  Report Type: 
  Country: None (occurrence: None)
  Receive Date: 20091210
  Receipt Date: 20091210
  Transmission Date: 20100525
  Serious: Yes (Hospitalization)
  Sender: FDA-Public Use
  Company Number: None

PATIENT
  Age: 31 Year
  Sex: Male
  Weight: 98 kg

DRUGS (1)
  1. FLUOROURACIL [Suspect]
     Indication: COLON CANCER
     Dosage: 5, 615 MG ONE TIME IV
     Route: 042
     Dates: start: 20090915, end: 20091202

REACTIONS (2)
  - FLUSHING [None]
  - HYPERHIDROSIS [None]
